FAERS Safety Report 5476039-4 (Version None)
Quarter: 2007Q4

REPORT INFORMATION
  Report Type: 
  Country: None (occurrence: None)
  Receive Date: 20071003
  Receipt Date: 20070921
  Transmission Date: 20080405
  Serious: Yes (Other)
  Sender: FDA-Public Use
  Company Number: FR-SANOFI-SYNTHELABO-A01200710948

PATIENT
  Sex: Male

DRUGS (1)
  1. ELIGARD [Suspect]
     Route: 058
     Dates: start: 20070825, end: 20070825

REACTIONS (1)
  - INJECTION SITE NECROSIS [None]
